FAERS Safety Report 4716311-6 (Version None)
Quarter: 2005Q3

REPORT INFORMATION
  Report Type: 
  Country: None (occurrence: None)
  Receive Date: 20050711
  Receipt Date: 20041221
  Transmission Date: 20060218
  Serious: Yes (Death)
  Sender: FDA-Public Use
  Company Number: 390310

PATIENT
  Age: 43 Year
  Sex: Female
  Weight: 51.7 kg

DRUGS (6)
  1. CELLCEPT [Suspect]
     Indication: PROPHYLAXIS AGAINST TRANSPLANT REJECTION
     Dosage: 250 MG 2 PER DAY ORAL
     Route: 048
     Dates: start: 20040615, end: 20041115
  2. PREDNISONE [Concomitant]
  3. ACYCLOVIR [Concomitant]
  4. VFEND [Concomitant]
  5. NEORAL [Concomitant]
  6. PREVACID [Concomitant]

REACTIONS (1)
  - DISEASE PROGRESSION [None]
